FAERS Safety Report 8104554-3 (Version None)
Quarter: 2012Q1

REPORT INFORMATION
  Report Type: 
  Country: None (occurrence: None)
  Receive Date: 20120130
  Receipt Date: 20120120
  Transmission Date: 20120608
  Serious: Yes (Other)
  Sender: FDA-Public Use
  Company Number: PHHY2012CA005721

PATIENT

DRUGS (4)
  1. BETA BLOCKING AGENTS [Concomitant]
  2. DIURETICS [Concomitant]
  3. ALISKIREN [Suspect]
  4. ANGIOTENSIN II ANTAGONISTS [Concomitant]

REACTIONS (2)
  - RENAL FAILURE CHRONIC [None]
  - GLYCOSYLATED HAEMOGLOBIN INCREASED [None]
